FAERS Safety Report 6970442-9 (Version None)
Quarter: 2010Q3

REPORT INFORMATION
  Report Type: 
  Country: None (occurrence: None)
  Receive Date: 20100908
  Receipt Date: 20100831
  Transmission Date: 20110219
  Serious: Yes (Other)
  Sender: FDA-Public Use
  Company Number: IL-ROCHE-640627

PATIENT
  Age: 83 Year
  Sex: Male

DRUGS (4)
  1. BEVACIZUMAB [Suspect]
     Dosage: OTHER INDICATION: LOW VISUAL ACUITY; DOSE REPORTED AS 1.25 MG/0.05 ML
     Route: 031
  2. ESRACAIN [Concomitant]
  3. LOCALIN [Concomitant]
     Dosage: DOSE REPORTED AS 0.4% DROPS
  4. BETADINE [Concomitant]

REACTIONS (2)
  - RETINAL HAEMORRHAGE [None]
  - VITREOUS HAEMORRHAGE [None]
